FAERS Safety Report 4392843-8 (Version None)
Quarter: 2004Q3

REPORT INFORMATION
  Report Type: 
  Country: None (occurrence: None)
  Receive Date: 20040708
  Receipt Date: 20040628
  Transmission Date: 20050211
  Serious: Yes (Other)
  Sender: FDA-Public Use
  Company Number: PHBS2004CA08601

PATIENT
  Age: 54 Year
  Sex: Female

DRUGS (1)
  1. ZELNORM [Suspect]
     Indication: IRRITABLE BOWEL SYNDROME
     Dosage: 12 MG/DAY
     Route: 048
     Dates: start: 20040621, end: 20040625

REACTIONS (5)
  - BLOOD GLUCOSE INCREASED [None]
  - DEPRESSED LEVEL OF CONSCIOUSNESS [None]
  - DIZZINESS [None]
  - POLYDIPSIA [None]
  - POLYURIA [None]
